FAERS Safety Report 23535494 (Version 1)
Quarter: 2024Q1

REPORT INFORMATION
  Report Type: Spontaneous
  Country: US (occurrence: None)
  Receive Date: 20240218
  Receipt Date: 20240218
  Transmission Date: 20240409
  Serious: No
  Sender: FDA-Public Use
  Company Number: 2024A033751

PATIENT

DRUGS (1)
  1. FASLODEX [Suspect]
     Active Substance: FULVESTRANT
     Dosage: 250 MG / 5 ML UNKNOWN
     Route: 030
     Dates: start: 20210304

REACTIONS (3)
  - Drug intolerance [Unknown]
  - Injection site haematoma [Unknown]
  - Injection site ulcer [Unknown]
